FAERS Safety Report 13763685 (Version 2)
Quarter: 2017Q3

REPORT INFORMATION
  Report Type: Spontaneous
  Country: FR (occurrence: FR)
  Receive Date: 20170718
  Receipt Date: 20170719
  Transmission Date: 20171127
  Serious: Yes (Death)
  Sender: FDA-Public Use
  Company Number: FR-EISAI MEDICAL RESEARCH-EC-2017-029402

PATIENT
  Sex: Male

DRUGS (1)
  1. PANRETIN [Suspect]
     Active Substance: ALITRETINOIN
     Indication: PRODUCT USED FOR UNKNOWN INDICATION
     Dosage: UNKNOWN

REACTIONS (1)
  - Death [Fatal]
